FAERS Safety Report 6430103-1 (Version None)
Quarter: 2009Q4

REPORT INFORMATION
  Report Type: 
  Country: None (occurrence: None)
  Receive Date: 20091106
  Receipt Date: 20091102
  Transmission Date: 20100525
  Serious: Yes (Hospitalization)
  Sender: FDA-Public Use
  Company Number: DE-BRISTOL-MYERS SQUIBB COMPANY-14827497

PATIENT
  Age: 54 Year
  Sex: Female
  Weight: 43 kg

DRUGS (4)
  1. CETUXIMAB [Suspect]
     Indication: NON-SMALL CELL LUNG CANCER
     Dosage: INITIAL INF:28JUL09 RECENT INF:13OCT09(12TH) TEMP DISCONT ON 19OCT09
     Route: 042
     Dates: start: 20090728, end: 20091013
  2. CISPLATIN [Suspect]
     Indication: NON-SMALL CELL LUNG CANCER
     Dosage: INITIAL INF:28JUL09 28JUL09-29SEP09(63 D) TEMP DISCONT ON 19OCT09;RESTARTED-3NOV09 AND ONGOING
     Route: 042
     Dates: start: 20090728, end: 20090929
  3. CILENGITIDE [Suspect]
     Indication: NON-SMALL CELL LUNG CANCER
     Dosage: INITIAL INF:28JUL09 RECENT INF:16OCT09 (24TH) TEMP DISCONT ON 19OCT09
     Route: 042
     Dates: start: 20090728, end: 20091016
  4. VINORELBINE [Suspect]
     Indication: NON-SMALL CELL LUNG CANCER
     Dosage: INITIAL INF:28JUL09-06OCT09(8TH)(70D) TEMP DISCONT ON 19OCT09;RESTARTED-3NOV09 AND ONGOING
     Route: 042
     Dates: start: 20090728, end: 20091006

REACTIONS (1)
  - DEEP VEIN THROMBOSIS [None]
